FAERS Safety Report 16786146 (Version 1)
Quarter: 2019Q3

REPORT INFORMATION
  Report Type: Spontaneous
  Country: BR (occurrence: BR)
  Receive Date: 20190909
  Receipt Date: 20190909
  Transmission Date: 20191005
  Serious: Yes (Other)
  Sender: FDA-Public Use
  Company Number: BR-PFIZER INC-2019386745

PATIENT
  Age: 75 Year
  Sex: Female

DRUGS (1)
  1. LIPITOR [Suspect]
     Active Substance: ATORVASTATIN CALCIUM
     Dosage: UNK
     Dates: start: 2011

REACTIONS (4)
  - Retinal detachment [Unknown]
  - Fall [Unknown]
  - Visual impairment [Unknown]
  - Femur fracture [Unknown]

NARRATIVE: CASE EVENT DATE: 2017
